FAERS Safety Report 6469773-0 (Version None)
Quarter: 2009Q4

REPORT INFORMATION
  Report Type: 
  Country: None (occurrence: None)
  Receive Date: 20091203
  Receipt Date: 20080519
  Transmission Date: 20100525
  Serious: Yes (Other)
  Sender: FDA-Public Use
  Company Number: DE-ELI_LILLY_AND_COMPANY-DE200711000708

PATIENT
  Age: 81 Year
  Sex: Male

DRUGS (7)
  1. YENTREVE [Suspect]
     Indication: STRESS URINARY INCONTINENCE
     Dosage: ONE TABLET, DAILY (1/D)
     Route: 048
     Dates: start: 20071030
  2. YENTREVE [Suspect]
     Dosage: 20 MG, EVERY TWO DAYS
     Route: 048
     Dates: start: 20080401
  3. YENTREVE [Suspect]
     Dosage: 20 MG, DAILY (1/D)
     Route: 048
  4. DELIX [Concomitant]
     Dosage: 2.5 MG, DAILY (1/D)
     Dates: start: 19920101
  5. VIANI [Concomitant]
     Dosage: 1 D/F, EACH MORNING
  6. VIANI [Concomitant]
     Dosage: 1 D/F, EACH EVENING
  7. SPIRIVA [Concomitant]
     Dosage: 1 D/F, EACH MORNING

REACTIONS (4)
  - BRADYCARDIA [None]
  - SUPRAVENTRICULAR EXTRASYSTOLES [None]
  - TACHYCARDIA [None]
  - VENTRICULAR EXTRASYSTOLES [None]
